FAERS Safety Report 14036404 (Version 1)
Quarter: 2017Q4

REPORT INFORMATION
  Report Type: Spontaneous
  Country: US (occurrence: US)
  Receive Date: 20171003
  Receipt Date: 20171003
  Transmission Date: 20180321
  Serious: No
  Sender: FDA-Public Use
  Company Number: US-ROCHE-1902223

PATIENT
  Sex: Male
  Weight: 50.53 kg

DRUGS (2)
  1. CATHFLO ACTIVASE [Suspect]
     Active Substance: ALTEPLASE
     Indication: DEVICE OCCLUSION
     Dosage: TWICE
     Route: 042
     Dates: start: 20170301, end: 20170301
  2. CATHFLO ACTIVASE [Suspect]
     Active Substance: ALTEPLASE
     Route: 042

REACTIONS (3)
  - Device occlusion [Unknown]
  - Drug ineffective [Unknown]
  - No adverse event [Unknown]
